FAERS Safety Report 4603182-1 (Version None)
Quarter: 2005Q1

REPORT INFORMATION
  Report Type: 
  Country: None (occurrence: None)
  Receive Date: 20050307
  Receipt Date: 20050222
  Transmission Date: 20050727
  Serious: Yes (Hospitalization)
  Sender: FDA-Public Use
  Company Number: 2005-02-0001

PATIENT
  Age: 65 Year
  Sex: Female

DRUGS (3)
  1. DIAZOXIDE [Suspect]
     Indication: HYPOGLYCAEMIA
     Dosage: UNK-200MG/8H ORAL
     Route: 048
  2. STREPTOZOTOCIN [Concomitant]
  3. ADRIAMYCIN PFS [Concomitant]

REACTIONS (18)
  - ALOPECIA [None]
  - ANOREXIA [None]
  - BLOOD INSULIN INCREASED [None]
  - BLOOD SODIUM DECREASED [None]
  - CREPITATIONS [None]
  - GENERALISED OEDEMA [None]
  - HAEMOGLOBIN DECREASED [None]
  - HYPOGLYCAEMIA [None]
  - INTERSTITIAL LUNG DISEASE [None]
  - METASTASES TO LIVER [None]
  - NAUSEA [None]
  - OLIGURIA [None]
  - ORTHOPNOEA [None]
  - PANCREATIC NEOPLASM [None]
  - PULMONARY CONGESTION [None]
  - RENAL IMPAIRMENT [None]
  - RESPIRATORY FAILURE [None]
  - VOMITING [None]
